FAERS Safety Report 10070942 (Version 2)
Quarter: 2014Q2

REPORT INFORMATION
  Report Type: Other
  Country: US (occurrence: US)
  Receive Date: 20140410
  Receipt Date: 20140410
  Transmission Date: 20141212
  Serious: Yes (Other)
  Sender: FDA-Public Use
  Company Number: US-SHIRE-US201400985

PATIENT
  Age: 3 Year
  Sex: Female

DRUGS (1)
  1. VPRIV [Suspect]
     Indication: GAUCHER^S DISEASE
     Dosage: 1600 IU (4 VIALS), OTHER (BIWEEKLY)
     Route: 041
     Dates: start: 20120608

REACTIONS (2)
  - Pneumonia [Not Recovered/Not Resolved]
  - Cough [Not Recovered/Not Resolved]
